FAERS Safety Report 14610516 (Version 2)
Quarter: 2018Q2

REPORT INFORMATION
  Report Type: Report from Study
  Country: None (occurrence: US)
  Receive Date: 20180307
  Receipt Date: 20180409
  Transmission Date: 20180711
  Serious: No
  Sender: FDA-Public Use
  Company Number: US-ABBVIE-18K-163-2227961-00

PATIENT
  Sex: Female

DRUGS (1)
  1. HUMIRA [Suspect]
     Active Substance: ADALIMUMAB
     Indication: RHEUMATOID ARTHRITIS
     Route: 058
     Dates: start: 201708

REACTIONS (6)
  - Rheumatoid arthritis [Unknown]
  - Osteoporosis [Unknown]
  - Gait disturbance [Unknown]
  - Osteoarthritis [Unknown]
  - Arthralgia [Unknown]
  - Sensitivity to weather change [Unknown]
